FAERS Safety Report 22129392 (Version 1)
Quarter: 2023Q1

REPORT INFORMATION
  Report Type: Spontaneous
  Country: US (occurrence: US)
  Receive Date: 20230323
  Receipt Date: 20230323
  Transmission Date: 20230418
  Serious: Yes (Other)
  Sender: FDA-Public Use
  Company Number: US-INSMED, INC.-2023-00986-US

PATIENT

DRUGS (1)
  1. ARIKAYCE [Suspect]
     Active Substance: AMIKACIN
     Indication: Product used for unknown indication
     Dosage: 590 MILLIGRAM
     Route: 055
     Dates: end: 20230215

REACTIONS (6)
  - Lung disorder [Unknown]
  - Gait disturbance [Recovered/Resolved]
  - Exercise tolerance decreased [Unknown]
  - Dyspnoea exertional [Recovered/Resolved]
  - Fatigue [Unknown]
  - Dysphonia [Recovered/Resolved]
